FAERS Safety Report 18794779 (Version 1)
Quarter: 2021Q1

REPORT INFORMATION
  Report Type: Spontaneous
  Country: US (occurrence: US)
  Receive Date: 20210127
  Receipt Date: 20210127
  Transmission Date: 20210419
  Serious: Yes (Hospitalization)
  Sender: FDA-Public Use
  Company Number: US-LUPIN PHARMACEUTICALS INC.-2021-00705

PATIENT
  Age: 5 Year
  Sex: Female

DRUGS (2)
  1. CLONIDINE. [Suspect]
     Active Substance: CLONIDINE
     Indication: FEBRILE INFECTION-RELATED EPILEPSY SYNDROME
     Dosage: UNK
     Route: 065
  2. PENTOBARBITAL. [Suspect]
     Active Substance: PENTOBARBITAL
     Indication: FEBRILE INFECTION-RELATED EPILEPSY SYNDROME
     Dosage: UNK
     Route: 065

REACTIONS (1)
  - Drug ineffective [Unknown]
